FAERS Safety Report 9335476 (Version 1)
Quarter: 2013Q2

REPORT INFORMATION
  Report Type: Report from Study
  Country: CA (occurrence: CA)
  Receive Date: 20130605
  Receipt Date: 20130605
  Transmission Date: 20140414
  Serious: Yes (Hospitalization)
  Sender: FDA-Public Use
  Company Number: CA-ABBOTT-13P-028-1096662-00

PATIENT
  Age: 22 Year
  Sex: Female
  Weight: 83.99 kg

DRUGS (3)
  1. HUMIRA [Suspect]
     Indication: PSORIASIS
     Route: 058
     Dates: start: 20120614, end: 20120725
  2. MARVELON [Concomitant]
     Indication: ORAL CONTRACEPTION
     Route: 048
     Dates: start: 2010
  3. METHOTREXATE [Concomitant]
     Indication: PRODUCT USED FOR UNKNOWN INDICATION
     Dates: start: 20120227, end: 20120607

REACTIONS (8)
  - Depressed level of consciousness [Unknown]
  - Urosepsis [Unknown]
  - Pyrexia [Recovered/Resolved]
  - Flank pain [Recovered/Resolved]
  - Anuria [Recovered/Resolved]
  - Chills [Unknown]
  - Night sweats [Unknown]
  - Angiomyolipoma [Unknown]
